FAERS Safety Report 8103035-0 (Version None)
Quarter: 2012Q1

REPORT INFORMATION
  Report Type: 
  Country: None (occurrence: None)
  Receive Date: 20120201
  Receipt Date: 20120201
  Transmission Date: 20120608
  Serious: Yes (Hospitalization)
  Sender: FDA-Public Use
  Company Number: None

PATIENT
  Sex: Male
  Weight: 45.359 kg

DRUGS (5)
  1. PEGASYS [Concomitant]
     Indication: HEPATITIS C
     Dosage: 0.5 ML
     Route: 058
     Dates: start: 20111024, end: 20120122
  2. INCIVEK [Suspect]
     Indication: HEPATITIS C
     Dosage: 2 TABLETS
     Route: 048
     Dates: start: 20111024, end: 20120122
  3. RIBAVIRIN [Concomitant]
     Route: 048
  4. RIBAVIRIN [Concomitant]
     Route: 048
  5. FLUTICASONE INHALER [Concomitant]

REACTIONS (10)
  - FLUID INTAKE REDUCED [None]
  - ACTIVITIES OF DAILY LIVING IMPAIRED [None]
  - HYPOPHAGIA [None]
  - HAEMOGLOBIN DECREASED [None]
  - VOMITING [None]
  - MOBILITY DECREASED [None]
  - FAECES DISCOLOURED [None]
  - LETHARGY [None]
  - COMMUNICATION DISORDER [None]
  - DEPRESSION [None]
